FAERS Safety Report 25511859 (Version 1)
Quarter: 2025Q3

REPORT INFORMATION
  Report Type: Spontaneous
  Country: US (occurrence: US)
  Receive Date: 20250703
  Receipt Date: 20250703
  Transmission Date: 20251020
  Serious: No
  Sender: RADIUS PHARM
  Company Number: US-RADIUS HEALTH INC.-2024US004563

PATIENT
  Age: 41 Year
  Sex: Female

DRUGS (1)
  1. TYMLOS [Suspect]
     Active Substance: ABALOPARATIDE
     Indication: Osteoporotic fracture
     Route: 058

REACTIONS (14)
  - Product administered to patient of inappropriate age [Unknown]
  - Bone pain [Unknown]
  - Myalgia [Unknown]
  - Intentional dose omission [Unknown]
  - Blood pressure increased [Not Recovered/Not Resolved]
  - Heart rate increased [Unknown]
  - Palpitations [Unknown]
  - Nausea [Unknown]
  - Pain [Unknown]
  - Menstrual disorder [Unknown]
  - Blood pressure decreased [Unknown]
  - Amenorrhoea [Not Recovered/Not Resolved]
  - Dizziness [Unknown]
  - Migraine [Unknown]

NARRATIVE: CASE EVENT DATE: 20241001
